FAERS Safety Report 18207194 (Version 3)
Quarter: 2020Q4

REPORT INFORMATION
  Report Type: Spontaneous
  Country: US (occurrence: US)
  Receive Date: 20200828
  Receipt Date: 20201007
  Transmission Date: 20210113
  Serious: Yes (Other)
  Sender: FDA-Public Use
  Company Number: US-COVIS PHARMA B.V.-2020COV00321

PATIENT
  Sex: Male
  Weight: 112.47 kg

DRUGS (2)
  1. UNSPECIFIED ^THEY ARE PREVENTATIVE^ MEDICATIONS [Concomitant]
  2. ALVESCO [Suspect]
     Active Substance: CICLESONIDE
     Indication: CHRONIC OBSTRUCTIVE PULMONARY DISEASE
     Dosage: 320 ?G, 2X/DAY IN THE MORNING AND EVENING
     Dates: start: 2020, end: 202008

REACTIONS (4)
  - Bronchospasm [Recovering/Resolving]
  - Chest discomfort [Recovered/Resolved]
  - Wheezing [Recovering/Resolving]
  - Dyspnoea [Recovered/Resolved]

NARRATIVE: CASE EVENT DATE: 2020
